FAERS Safety Report 17847104 (Version 5)
Quarter: 2021Q1

REPORT INFORMATION
  Report Type: Report from Study
  Country: US (occurrence: US)
  Receive Date: 20200601
  Receipt Date: 20210318
  Transmission Date: 20210419
  Serious: Yes (Other)
  Sender: FDA-Public Use
  Company Number: NVSC2020US150718

PATIENT
  Sex: Male

DRUGS (3)
  1. CYCLOPHOSPHAMIDE. [Concomitant]
     Active Substance: CYCLOPHOSPHAMIDE
     Indication: CHEMOTHERAPY
     Dosage: UNK
     Route: 065
  2. FLUDARABINE [Concomitant]
     Active Substance: FLUDARABINE PHOSPHATE
     Indication: CHEMOTHERAPY
     Dosage: UNK
     Route: 065
  3. KYMRIAH [Suspect]
     Active Substance: TISAGENLECLEUCEL
     Indication: B-CELL TYPE ACUTE LEUKAEMIA
     Dosage: UNK
     Route: 041
     Dates: start: 20200427, end: 20200427

REACTIONS (17)
  - Drug ineffective [Unknown]
  - Leukaemia recurrent [Unknown]
  - Thrombocytopenia [Unknown]
  - Neutropenia [Unknown]
  - Enterococcal infection [Unknown]
  - Cytokine release syndrome [Recovered/Resolved]
  - Cytopenia [Unknown]
  - White blood cell count decreased [Unknown]
  - Candida infection [Unknown]
  - Hypoxia [Unknown]
  - Haematocrit decreased [Unknown]
  - Haemophagocytic lymphohistiocytosis [Unknown]
  - B-cell type acute leukaemia [Unknown]
  - Aspergillus infection [Unknown]
  - Pyrexia [Unknown]
  - Lymphocyte count decreased [Unknown]
  - Haemoglobin decreased [Unknown]
